FAERS Safety Report 14492039 (Version 2)
Quarter: 2018Q1

REPORT INFORMATION
  Report Type: Spontaneous
  Country: US (occurrence: US)
  Receive Date: 20180206
  Receipt Date: 20180209
  Transmission Date: 20180509
  Serious: No
  Sender: FDA-Public Use
  Company Number: US-PFIZER INC-2018050538

PATIENT
  Age: 69 Year
  Sex: Male
  Weight: 102 kg

DRUGS (3)
  1. GABAPENTIN. [Suspect]
     Active Substance: GABAPENTIN
     Dosage: 400 MG, 3X/DAY
     Dates: start: 2017, end: 2017
  2. GABAPENTIN. [Suspect]
     Active Substance: GABAPENTIN
     Indication: SPINAL PAIN
     Dosage: 300 MG, UNK
     Dates: start: 2017, end: 2017
  3. GABAPENTIN. [Suspect]
     Active Substance: GABAPENTIN
     Dosage: 1800 MG, 2X/DAY
     Dates: start: 2017, end: 2017

REACTIONS (7)
  - Dizziness [Unknown]
  - Vision blurred [Unknown]
  - Balance disorder [Unknown]
  - Drug ineffective for unapproved indication [Recovered/Resolved]
  - Loss of personal independence in daily activities [Recovered/Resolved]
  - Feeling drunk [Unknown]
  - Confusional state [Unknown]

NARRATIVE: CASE EVENT DATE: 2017
